FAERS Safety Report 16608081 (Version 2)
Quarter: 2019Q3

REPORT INFORMATION
  Report Type: Spontaneous
  Country: DE (occurrence: DE)
  Receive Date: 20190722
  Receipt Date: 20190806
  Transmission Date: 20191004
  Serious: Yes (Hospitalization, Other)
  Sender: FDA-Public Use
  Company Number: DE-BRISTOL-MYERS SQUIBB COMPANY-BMS-2019-069090

PATIENT
  Age: 71 Year
  Sex: Male
  Weight: 68 kg

DRUGS (9)
  1. PRAVASINE [Suspect]
     Active Substance: PRAVASTATIN SODIUM
     Indication: PRODUCT USED FOR UNKNOWN INDICATION
     Dosage: 20 MILLIGRAM
     Route: 065
     Dates: end: 201904
  2. LISINOPRIL. [Suspect]
     Active Substance: LISINOPRIL
     Indication: VASCULAR GRAFT
     Dosage: 5 MILLIGRAM, NUMBER OF UNITS IN THE INTERVAL: 1 DAY
     Route: 065
     Dates: start: 2003, end: 2019
  3. ASPIRIN PROTECT [Concomitant]
     Active Substance: ASPIRIN
     Indication: VASCULAR GRAFT
     Dosage: 100 MILLIGRAM, NUMBER OF UNITS IN THE INTERVAL: 1 DAY
     Route: 065
     Dates: start: 2003
  4. PRAVASINE [Suspect]
     Active Substance: PRAVASTATIN SODIUM
     Indication: PRODUCT USED FOR UNKNOWN INDICATION
     Dosage: 10 MILLIGRAM, DURATION OF DRUG ADMINISTARION 12 YEARS
     Route: 065
  5. PRAVASINE [Suspect]
     Active Substance: PRAVASTATIN SODIUM
     Indication: VASCULAR GRAFT
     Dosage: 20 MILLIGRAM, DURATION OF DRUG ADMINISTRATION 2 YEAR
     Route: 065
     Dates: start: 2003
  6. XUSAL [Concomitant]
     Active Substance: LEVOCETIRIZINE DIHYDROCHLORIDE
     Indication: PRODUCT USED FOR UNKNOWN INDICATION
     Dosage: 0.5 MILLIGRAM, NUMBER OF UNITS IN THE INTERVAL: 1 DAY
     Route: 065
     Dates: start: 2009
  7. JODID [Concomitant]
     Active Substance: IODINE
     Indication: PRODUCT USED FOR UNKNOWN INDICATION
     Dosage: 200 MILLIGRAM, NUMBER OF UNITS IN THE INTERVAL: 1 DAY
     Route: 065
  8. LISINOPRIL. [Suspect]
     Active Substance: LISINOPRIL
     Indication: PRODUCT USED FOR UNKNOWN INDICATION
     Dosage: UNK
     Route: 065
     Dates: start: 2019
  9. TAMSULOSIN [TAMSULOSIN HYDROCHLORIDE] [Concomitant]
     Active Substance: TAMSULOSIN HYDROCHLORIDE
     Indication: PRODUCT USED FOR UNKNOWN INDICATION
     Dosage: 0.4 MILLIGRAM, NUMBER OF UNITS IN THE INTERVAL: 2 DAYS
     Route: 065
     Dates: start: 2009

REACTIONS (12)
  - Adverse reaction [Unknown]
  - Pollakiuria [Unknown]
  - Hypersensitivity [Unknown]
  - Dermatitis [Unknown]
  - General physical condition decreased [Unknown]
  - Pyrexia [Unknown]
  - Blood pressure fluctuation [Unknown]
  - Chills [Unknown]
  - Swelling face [Unknown]
  - Hypertensive crisis [Unknown]
  - Weight decreased [Unknown]
  - Intentional product use issue [Unknown]

NARRATIVE: CASE EVENT DATE: 200502
